FAERS Safety Report 5472286-6 (Version None)
Quarter: 2007Q3

REPORT INFORMATION
  Report Type: 
  Country: None (occurrence: None)
  Receive Date: 20070925
  Receipt Date: 20070917
  Transmission Date: 20080115
  Serious: Yes (Other)
  Sender: FDA-Public Use
  Company Number: 6323/6038149

PATIENT
  Age: 19 Year
  Sex: Female

DRUGS (10)
  1. PREDNISONE [Suspect]
     Dosage: 60 MG (15 MG, 4 IN 1 D)
  2. MYCOPHENOLATE MOFETIL [Suspect]
     Dosage: 1000 MG (500 MG, 2 IN 1 D)
  3. CYCLOSPORINE [Suspect]
     Indication: DRUG USE FOR UNKNOWN INDICATION
     Dosage: 400 MG (200 MG, 2 IN 1 D)
  4. VALGANCICLOVIR HCL [Suspect]
     Indication: DRUG USE FOR UNKNOWN INDICATION
     Dosage: 128,5714 MG (450 MG, 2 IN 1 WK)
  5. TRIMETHOPRIM + SULFAMETHOXAZOLE [Suspect]
     Indication: DRUG USE FOR UNKNOWN INDICATION
     Dosage: 160/180 TWICE IN ONE WEEK (2 IN 1 WK)
  6. PRAVASTATIN [Suspect]
     Indication: DRUG USE FOR UNKNOWN INDICATION
     Dosage: 160 MG (40 MG, 4 IN 1 D)
  7. CLOTRIMAZOLE [Suspect]
     Indication: DRUG USE FOR UNKNOWN INDICATION
     Dosage: 30 MG (10 MG, 3 IN 1 D)
  8. OMEPRAZOLE [Suspect]
     Indication: DRUG USE FOR UNKNOWN INDICATION
     Dosage: 80 MG (20 MG, 4 IN 1 D)
  9. LISINOPRIL [Suspect]
     Indication: DRUG USE FOR UNKNOWN INDICATION
     Dosage: 10 MG (5 MG, 2 IN 1 D)
  10. DARBEPOETIN (DARBEPOETIN ALFA) [Suspect]
     Indication: DRUG USE FOR UNKNOWN INDICATION
     Dosage: 28,5714 MCG (200 MCG, 1 IN 1 WK)

REACTIONS (9)
  - BLOOD PHOSPHORUS INCREASED [None]
  - FLUID OVERLOAD [None]
  - HAEMODIALYSIS [None]
  - HYPOTENSION [None]
  - LABORATORY TEST ABNORMAL [None]
  - MULTI-ORGAN DISORDER [None]
  - NEPHROGENIC SYSTEMIC FIBROSIS [None]
  - RENAL TUBULAR NECROSIS [None]
  - SERUM FERRITIN INCREASED [None]
